FAERS Safety Report 9716976 (Version 1)
Quarter: 2013Q4

REPORT INFORMATION
  Report Type: Spontaneous
  Country: US (occurrence: US)
  Receive Date: 20131127
  Receipt Date: 20131127
  Transmission Date: 20140711
  Serious: No
  Sender: FDA-Public Use
  Company Number: US-GILEAD-2009-0020125

PATIENT
  Sex: Female
  Weight: 133.81 kg

DRUGS (7)
  1. LETAIRIS [Suspect]
     Indication: PULMONARY ARTERIAL HYPERTENSION
     Route: 048
     Dates: start: 20081218
  2. OXYGEN [Concomitant]
  3. COUMADIN [Concomitant]
  4. LISINOPRIL-HCTZ [Concomitant]
  5. BYSTOLIC [Concomitant]
  6. PROPAFENONE HCL [Concomitant]
  7. FELDENE [Concomitant]

REACTIONS (1)
  - Oedema [Unknown]
